FAERS Safety Report 7488185-4 (Version None)
Quarter: 2011Q2

REPORT INFORMATION
  Report Type: 
  Country: None (occurrence: None)
  Receive Date: 20110518
  Receipt Date: 20110509
  Transmission Date: 20111010
  Serious: Yes (Hospitalization)
  Sender: FDA-Public Use
  Company Number: BR-ASTRAZENECA-2011SE27844

PATIENT
  Age: 62 Year
  Sex: Female

DRUGS (4)
  1. ASPIRIN [Concomitant]
  2. METOPROLOL SUCCINATE [Suspect]
     Route: 048
     Dates: end: 20110101
  3. METOPROLOL TARTRATE [Suspect]
     Indication: HYPERTENSION
     Route: 048
     Dates: start: 20101101
  4. METOPROLOL SUCCINATE [Suspect]
     Indication: HYPERTENSION
     Route: 048

REACTIONS (4)
  - ANGIOPLASTY [None]
  - STENT PLACEMENT [None]
  - PAIN IN JAW [None]
  - HYPOTENSION [None]
